FAERS Safety Report 7432887-2 (Version None)
Quarter: 2011Q2

REPORT INFORMATION
  Report Type: 
  Country: None (occurrence: None)
  Receive Date: 20110422
  Receipt Date: 20110418
  Transmission Date: 20111010
  Serious: Yes (Death, Life-Threatening)
  Sender: FDA-Public Use
  Company Number: DE-ASTRAZENECA-2011SE18743

PATIENT
  Sex: Male
  Weight: 78 kg

DRUGS (2)
  1. BRILIQUE [Suspect]
     Indication: ACUTE MYOCARDIAL INFARCTION
     Route: 048
     Dates: start: 20110307, end: 20110318
  2. BRILIQUE [Suspect]
     Indication: THROMBOSIS IN DEVICE
     Route: 048
     Dates: start: 20110307, end: 20110318

REACTIONS (1)
  - MYOCARDIAL INFARCTION [None]
